FAERS Safety Report 10409569 (Version 2)
Quarter: 2015Q3

REPORT INFORMATION
  Report Type: Spontaneous
  Country: US (occurrence: US)
  Receive Date: 20140826
  Receipt Date: 20150929
  Transmission Date: 20151125
  Serious: No
  Sender: FDA-Public Use
  Company Number: US-PFIZER INC-2014231603

PATIENT
  Age: 36 Year
  Sex: Male
  Weight: 79 kg

DRUGS (2)
  1. DILANTIN [Concomitant]
     Active Substance: PHENYTOIN
     Dosage: UNK
  2. PHENYTOIN SODIUM. [Suspect]
     Active Substance: PHENYTOIN SODIUM
     Indication: SEIZURE
     Dosage: 100 MG, UNK

REACTIONS (1)
  - Drug ineffective [Unknown]
